FAERS Safety Report 23494942 (Version 2)
Quarter: 2024Q1

REPORT INFORMATION
  Report Type: Spontaneous
  Country: US (occurrence: US)
  Receive Date: 20240207
  Receipt Date: 20240320
  Transmission Date: 20240409
  Serious: Yes (Death)
  Sender: FDA-Public Use
  Company Number: US-Calliditas-2024CAL00156

PATIENT
  Age: 60 Year
  Sex: Male

DRUGS (1)
  1. TARPEYO [Suspect]
     Active Substance: BUDESONIDE
     Indication: IgA nephropathy
     Route: 048
     Dates: start: 20221022, end: 20240107

REACTIONS (7)
  - Septic shock [Fatal]
  - Enterococcal infection [Fatal]
  - Pneumonia [Fatal]
  - Vertebral artery occlusion [Fatal]
  - Respiratory failure [Fatal]
  - Multiple organ dysfunction syndrome [Fatal]
  - Urinary tract infection enterococcal [Fatal]

NARRATIVE: CASE EVENT DATE: 20240122
